FAERS Safety Report 7638019-X (Version None)
Quarter: 2011Q3

REPORT INFORMATION
  Report Type: 
  Country: None (occurrence: None)
  Receive Date: 20110722
  Receipt Date: 20110722
  Transmission Date: 20111222
  Serious: Yes (Hospitalization)
  Sender: FDA-Public Use
  Company Number: None

PATIENT
  Sex: Male
  Weight: 76.6 kg

DRUGS (2)
  1. VINCRISTINE SULFATE [Suspect]
     Dosage: 2 MG
  2. PEG-L-ASPARAGINASE (K-H) [Suspect]
     Dosage: 4850 IU

REACTIONS (4)
  - HYPOTENSION [None]
  - CHEST PAIN [None]
  - LOSS OF CONSCIOUSNESS [None]
  - DYSPNOEA [None]
